FAERS Safety Report 10948318 (Version 1)
Quarter: 2015Q1

REPORT INFORMATION
  Report Type: Spontaneous
  Country: US (occurrence: None)
  Receive Date: 20150320
  Receipt Date: 20150320
  Transmission Date: 20150721
  Serious: Yes (Hospitalization, Other)
  Sender: FDA-Public Use
  Company Number: HA15-072-AE

PATIENT
  Age: 48 Year
  Sex: Male
  Weight: 90.72 kg

DRUGS (3)
  1. METFORMIN HCL ER TABS 500MG [Suspect]
     Active Substance: METFORMIN HYDROCHLORIDE
     Indication: HYPERGLYCAEMIA
     Route: 048
     Dates: start: 2012, end: 20150205
  2. CITALOPRAM [Concomitant]
     Active Substance: CITALOPRAM HYDROBROMIDE
  3. BISOPROLOL HYDROCHLOROTHIAZIDE [Concomitant]

REACTIONS (15)
  - Hypoxia [None]
  - Hypertension [None]
  - Altered state of consciousness [None]
  - Dizziness [None]
  - Leukocytosis [None]
  - Protein urine present [None]
  - Drug level increased [None]
  - Vomiting [None]
  - Hypokalaemia [None]
  - Glucose urine present [None]
  - Hyperlipidaemia [None]
  - Insulin C-peptide increased [None]
  - Hypoglycaemia [None]
  - Seizure [None]
  - Anaemia macrocytic [None]

NARRATIVE: CASE EVENT DATE: 20150204
